FAERS Safety Report 16968921 (Version 1)
Quarter: 2019Q4

REPORT INFORMATION
  Report Type: Spontaneous
  Country: IT (occurrence: IT)
  Receive Date: 20191029
  Receipt Date: 20191029
  Transmission Date: 20200122
  Serious: Yes (Disabling)
  Sender: FDA-Public Use
  Company Number: IT-TEVA-2019-IT-1127697

PATIENT
  Age: 38 Year
  Sex: Male
  Weight: 78 kg

DRUGS (2)
  1. RISPERIDONE. [Suspect]
     Active Substance: RISPERIDONE
     Route: 065
  2. DEPAKIN [Concomitant]
     Active Substance: VALPROATE SODIUM

REACTIONS (1)
  - Male sexual dysfunction [Not Recovered/Not Resolved]

NARRATIVE: CASE EVENT DATE: 20010430
